FAERS Safety Report 8834439 (Version 1)
Quarter: 2012Q4

REPORT INFORMATION
  Report Type: 
  Country: US (occurrence: US)
  Receive Date: 20121010
  Receipt Date: 20121010
  Transmission Date: 20130627
  Serious: No
  Sender: FDA-Public Use
  Company Number: US-009507513-1210USA003408

PATIENT

DRUGS (1)
  1. ZETIA [Suspect]
     Dosage: 10 mg, UNK
     Route: 048

REACTIONS (3)
  - Swelling [Unknown]
  - Pruritus [Unknown]
  - Malaise [Unknown]
